FAERS Safety Report 7289899-1 (Version None)
Quarter: 2011Q1

REPORT INFORMATION
  Report Type: 
  Country: None (occurrence: None)
  Receive Date: 20110126
  Receipt Date: 20101231
  Transmission Date: 20110831
  Serious: Yes (Death)
  Sender: FDA-Public Use
  Company Number: AUR-APL-2011-00169

PATIENT
  Age: 76 Year
  Sex: Female

DRUGS (8)
  1. SIMVASTATIN [Suspect]
     Dosage: ORAL
     Route: 048
  2. PANTOPRAZOLE [Suspect]
     Dosage: ORAL
     Route: 048
  3. LEVOTHYROXINE [Suspect]
     Dosage: ORAL
     Route: 048
  4. AMPHETAMINE [Suspect]
     Dosage: ORAL
     Route: 048
  5. ALPRAZOLAM [Suspect]
     Dosage: ORAL
     Route: 048
  6. FUROSEMIDE [Suspect]
     Dosage: ORAL
     Route: 048
  7. ACETAMINOPHEN AND HYDROCODONE BITARTRATE [Suspect]
     Dosage: ORAL
     Route: 048
  8. METHADONE [Suspect]
     Dosage: ORAL
     Route: 048

REACTIONS (3)
  - TOXICITY TO VARIOUS AGENTS [None]
  - INTENTIONAL DRUG MISUSE [None]
  - COMPLETED SUICIDE [None]
